FAERS Safety Report 5474385-1 (Version None)
Quarter: 2007Q3

REPORT INFORMATION
  Report Type: 
  Country: None (occurrence: None)
  Receive Date: 20070904
  Receipt Date: 20070517
  Transmission Date: 20080115
  Serious: Yes (Other)
  Sender: FDA-Public Use
  Company Number: 156628USA

PATIENT
  Age: 18 Year
  Sex: Female

DRUGS (1)
  1. MISOPROSTOL [Suspect]
     Dosage: ORAL
     Route: 048

REACTIONS (2)
  - MUSCLE SPASMS [None]
  - VAGINAL HAEMORRHAGE [None]
